FAERS Safety Report 17687742 (Version 1)
Quarter: 2020Q2

REPORT INFORMATION
  Report Type: Spontaneous
  Country: US (occurrence: US)
  Receive Date: 20200421
  Receipt Date: 20200421
  Transmission Date: 20200714
  Serious: No
  Sender: FDA-Public Use
  Company Number: US-GILEAD-2020-0459693

PATIENT
  Sex: Male

DRUGS (1)
  1. ATRIPLA [Suspect]
     Active Substance: EFAVIRENZ\EMTRICITABINE\TENOFOVIR DISOPROXIL FUMARATE
     Indication: HIV INFECTION
     Dosage: UNK
     Route: 048
     Dates: start: 201303, end: 201712

REACTIONS (6)
  - Anxiety [Unknown]
  - Pain [Unknown]
  - Economic problem [Unknown]
  - Anhedonia [Unknown]
  - Osteopenia [Unknown]
  - Emotional distress [Unknown]
